FAERS Safety Report 6371207-1 (Version None)
Quarter: 2009Q3

REPORT INFORMATION
  Report Type: 
  Country: None (occurrence: None)
  Receive Date: 20090923
  Receipt Date: 20080411
  Transmission Date: 20100115
  Serious: No
  Sender: FDA-Public Use
  Company Number: US-ASTRAZENECA-2006UW27577

PATIENT
  Age: 19 Year
  Sex: Male

DRUGS (4)
  1. SEROQUEL [Suspect]
     Indication: PSYCHOTIC DISORDER
     Route: 048
  2. SEROQUEL [Suspect]
     Indication: INTERMITTENT EXPLOSIVE DISORDER
     Route: 048
  3. RISPERDAL [Suspect]
     Dosage: 1 MG , 2MG + 3 MG
     Route: 048
     Dates: start: 20000613, end: 20021001
  4. ZYPREXA [Suspect]

REACTIONS (8)
  - AFFECTIVE DISORDER [None]
  - ANTISOCIAL PERSONALITY DISORDER [None]
  - BIPOLAR DISORDER [None]
  - HALLUCINATION [None]
  - INTERMITTENT EXPLOSIVE DISORDER [None]
  - JUDGEMENT IMPAIRED [None]
  - SHARED PSYCHOTIC DISORDER [None]
  - TYPE 2 DIABETES MELLITUS [None]
